FAERS Safety Report 15358521 (Version 1)
Quarter: 2018Q3

REPORT INFORMATION
  Report Type: Spontaneous
  Country: DE (occurrence: DE)
  Receive Date: 20180906
  Receipt Date: 20180906
  Transmission Date: 20181010
  Serious: Yes (Other)
  Sender: FDA-Public Use
  Company Number: PHHY2018DE088282

PATIENT
  Sex: Female
  Weight: 3.79 kg

DRUGS (5)
  1. BUPROPION. [Suspect]
     Active Substance: BUPROPION
     Dosage: 150 MG, TID
     Route: 064
  2. BUPROPION. [Suspect]
     Active Substance: BUPROPION
     Indication: DEPRESSION
     Dosage: 150 MG, QD
     Route: 064
  3. BISOHEXAL [Concomitant]
     Active Substance: BISOPROLOL FUMARATE
     Indication: ARRHYTHMIA
     Dosage: 2.5 MG, QD
     Route: 064
  4. BISOHEXAL [Concomitant]
     Active Substance: BISOPROLOL FUMARATE
     Dosage: 1.5 MG, QD
     Route: 064
  5. MAGNETRANS [Concomitant]
     Indication: MUSCLE TIGHTNESS
     Dosage: 150 MG, QD
     Route: 064

REACTIONS (2)
  - Myoclonus [Unknown]
  - Foetal exposure during pregnancy [Unknown]
